FAERS Safety Report 6886924-4 (Version None)
Quarter: 2010Q3

REPORT INFORMATION
  Report Type: 
  Country: None (occurrence: None)
  Receive Date: 20100708
  Receipt Date: 20100309
  Transmission Date: 20110219
  Serious: Yes (Other)
  Sender: FDA-Public Use
  Company Number: 2010030681

PATIENT
  Age: 57 Year
  Sex: Female
  Weight: 91 kg

DRUGS (8)
  1. CHANTIX [Suspect]
     Indication: SMOKING CESSATION THERAPY
     Dosage: 0.5 MG, 1X/DAY, ORAL; 1 MG, 2X/DAY, ORAL
     Route: 048
     Dates: start: 20100101, end: 20100101
  2. CHANTIX [Suspect]
     Indication: SMOKING CESSATION THERAPY
     Dosage: 0.5 MG, 1X/DAY, ORAL; 1 MG, 2X/DAY, ORAL
     Route: 048
     Dates: start: 20100101, end: 20100309
  3. HUMALOG (INSULIN LISPRO) INJECTION [Concomitant]
  4. LANTUS [Concomitant]
  5. EFFEXOR [Concomitant]
  6. AMITRIPTYLINE HYDROCHLORIDE [Concomitant]
  7. TOPROL (METOPROLOL) TABLET [Concomitant]
  8. PREMARIN [Concomitant]

REACTIONS (3)
  - DEPRESSION [None]
  - DIZZINESS [None]
  - PAIN [None]
